FAERS Safety Report 21916336 (Version 1)
Quarter: 2023Q1

REPORT INFORMATION
  Report Type: Other
  Country: None (occurrence: US)
  Receive Date: 20230126
  Receipt Date: 20230126
  Transmission Date: 20230417
  Serious: Yes (Hospitalization)
  Sender: FDA-Public Use
  Company Number: US-B.Braun Medical Inc.-2137113

PATIENT
  Sex: Female

DRUGS (5)
  1. DEXTROSE [Suspect]
     Active Substance: DEXTROSE
  2. CEFEPIME [Suspect]
     Active Substance: CEFEPIME HYDROCHLORIDE
  3. MEROPENEM [Suspect]
     Active Substance: MEROPENEM
  4. METRONIDAZOLE [Suspect]
     Active Substance: METRONIDAZOLE
  5. DEXTROSE [Suspect]
     Active Substance: DEXTROSE

REACTIONS (1)
  - Drug ineffective [Unknown]
